FAERS Safety Report 4852247-8 (Version None)
Quarter: 2005Q4

REPORT INFORMATION
  Report Type: 
  Country: None (occurrence: None)
  Receive Date: 20051123
  Receipt Date: 20050808
  Transmission Date: 20060501
  Serious: Yes (Life-Threatening)
  Sender: FDA-Public Use
  Company Number: US-JNJFOC-20050802511

PATIENT
  Age: 42 Year
  Sex: Female

DRUGS (1)
  1. LEVAQUIN [Suspect]
     Indication: HAEMATURIA
     Dosage: 250 MG, 1 IN 1 DAY, INTRAVENOUS
     Route: 042
     Dates: start: 20050807, end: 20050807

REACTIONS (1)
  - CARDIAC ARREST [None]
